FAERS Safety Report 9278111 (Version 2)
Quarter: 2013Q3

REPORT INFORMATION
  Report Type: Spontaneous
  Country: US (occurrence: US)
  Receive Date: 20130508
  Receipt Date: 20130711
  Transmission Date: 20140515
  Serious: Yes (Other)
  Sender: FDA-Public Use
  Company Number: US-NOVOPROD-377093

PATIENT
  Age: 6 Year
  Sex: Male
  Weight: 23.6 kg

DRUGS (1)
  1. NORDITROPIN FLEXPRO 6.7 MG/ML [Suspect]
     Indication: FAILURE TO THRIVE
     Dosage: UNK
     Route: 058
     Dates: end: 20120816

REACTIONS (1)
  - Renal failure chronic [Unknown]
